FAERS Safety Report 9169394 (Version 2)
Quarter: 2013Q1

REPORT INFORMATION
  Report Type: Report from Study
  Country: US (occurrence: US)
  Receive Date: 20130318
  Receipt Date: 20130329
  Transmission Date: 20140127
  Serious: Yes (Hospitalization, Other)
  Sender: FDA-Public Use
  Company Number: US-ABBOTT-13P-163-1063321-00

PATIENT
  Age: 42 None
  Sex: Female

DRUGS (1)
  1. HUMIRA [Suspect]
     Indication: ARTHROPATHY
     Dates: start: 20121211

REACTIONS (8)
  - Hepatic lesion [Unknown]
  - Drug withdrawal syndrome [Unknown]
  - Pain in extremity [Unknown]
  - Vomiting projectile [Unknown]
  - Hepatic cancer [Unknown]
  - Joint swelling [Unknown]
  - Off label use [Unknown]
  - Influenza like illness [Unknown]
